FAERS Safety Report 7926266-9 (Version None)
Quarter: 2011Q4

REPORT INFORMATION
  Report Type: 
  Country: None (occurrence: None)
  Receive Date: 20111118
  Receipt Date: 20111116
  Transmission Date: 20120403
  Serious: Yes (Hospitalization)
  Sender: FDA-Public Use
  Company Number: US-BIOGENIDEC-2011BI038455

PATIENT
  Age: 49 Year
  Sex: Male

DRUGS (1)
  1. AVONEX [Suspect]
     Indication: MULTIPLE SCLEROSIS
     Route: 030
     Dates: start: 20071026

REACTIONS (7)
  - JAUNDICE [None]
  - FALL [None]
  - FEMUR FRACTURE [None]
  - TRAUMATIC LIVER INJURY [None]
  - SPLENIC INJURY [None]
  - RED BLOOD CELL COUNT DECREASED [None]
  - PELVIC FRACTURE [None]
